FAERS Safety Report 4288543-5 (Version None)
Quarter: 2004Q1

REPORT INFORMATION
  Report Type: 
  Country: None (occurrence: None)
  Receive Date: 20040205
  Receipt Date: 20040127
  Transmission Date: 20041129
  Serious: Yes (Life-Threatening)
  Sender: FDA-Public Use
  Company Number: 2003189650JP

PATIENT
  Age: 1 Day
  Sex: Male
  Weight: 2.9 kg

DRUGS (4)
  1. ALPRAZOLAM [Suspect]
     Indication: PANIC DISORDER
     Dosage: 0.8 MG/DAY, ORAL
     Route: 048
     Dates: start: 20020401
  2. PAXIL [Suspect]
     Dosage: 30 MG/DAY, ORAL
     Route: 048
     Dates: start: 20021201
  3. ROHYPNOL (FLUNITRAZEPAM) [Suspect]
     Indication: PERSONALITY DISORDER
     Dosage: 2 MG/DAY, ORAL
     Route: 048
     Dates: start: 20021201
  4. RITALIN [Suspect]
     Dosage: 100 MG/DAY, ORAL
     Route: 048
     Dates: start: 20021201

REACTIONS (13)
  - APGAR SCORE LOW [None]
  - CYANOSIS CENTRAL [None]
  - DRUG TOXICITY [None]
  - DRUG WITHDRAWAL SYNDROME [None]
  - HEART RATE INCREASED [None]
  - HYPERSENSITIVITY [None]
  - HYPOPNOEA [None]
  - HYPOTONIA [None]
  - HYPOTONIA NEONATAL [None]
  - IRRITABILITY [None]
  - MATERNAL DRUGS AFFECTING FOETUS [None]
  - MUSCLE TWITCHING [None]
  - NEONATAL APNOEIC ATTACK [None]
